FAERS Safety Report 8144124-4 (Version None)
Quarter: 2012Q1

REPORT INFORMATION
  Report Type: 
  Country: None (occurrence: None)
  Receive Date: 20120217
  Receipt Date: 20120214
  Transmission Date: 20120608
  Serious: Yes (Death, Hospitalization, Other)
  Sender: FDA-Public Use
  Company Number: TW-ABBOTT-11P-153-0850326-00

PATIENT
  Sex: Female
  Weight: 60 kg

DRUGS (22)
  1. DONISON [Concomitant]
     Indication: PRODUCT USED FOR UNKNOWN INDICATION
     Dosage: 0.5 TABLET, 2 IN 1 D
     Dates: start: 20110707
  2. DONISON [Concomitant]
     Route: 048
     Dates: start: 20110809
  3. BROWN MIXTURE [Concomitant]
     Indication: PRODUCT USED FOR UNKNOWN INDICATION
     Dosage: 100 CC- QID
     Route: 048
     Dates: start: 20110809
  4. PROMERAN [Concomitant]
     Indication: PRODUCT USED FOR UNKNOWN INDICATION
     Route: 048
     Dates: start: 20110809
  5. MOBIC [Concomitant]
     Indication: PRODUCT USED FOR UNKNOWN INDICATION
     Dates: start: 20110707
  6. SULFASALAZINE [Concomitant]
     Route: 048
     Dates: start: 20110809
  7. IWELL [Concomitant]
     Route: 048
     Dates: start: 20110809
  8. GASCON [Concomitant]
     Indication: PRODUCT USED FOR UNKNOWN INDICATION
     Route: 048
     Dates: start: 20110809
  9. LEVOFLOXACIN [Concomitant]
     Indication: PRODUCT USED FOR UNKNOWN INDICATION
     Dosage: STAT
     Route: 048
     Dates: start: 20110809
  10. ULTRACET [Concomitant]
     Indication: PRODUCT USED FOR UNKNOWN INDICATION
     Dosage: ACT 325/TRAMADOL 37.5- BID
     Dates: start: 20110707
  11. METHOTREXATE [Concomitant]
     Indication: PRODUCT USED FOR UNKNOWN INDICATION
     Dates: start: 20110707
  12. FOLIC ACID [Concomitant]
     Route: 048
     Dates: start: 20110809
  13. IWELL [Concomitant]
     Indication: PRODUCT USED FOR UNKNOWN INDICATION
     Dates: start: 20110707
  14. SULFASALAZINE [Concomitant]
     Indication: PRODUCT USED FOR UNKNOWN INDICATION
     Dates: start: 20110707
  15. ARAVA [Concomitant]
     Indication: PRODUCT USED FOR UNKNOWN INDICATION
     Dates: start: 20110707
  16. DIOVAN [Concomitant]
     Indication: PRODUCT USED FOR UNKNOWN INDICATION
     Dates: start: 20110707
  17. HUMIRA [Suspect]
     Indication: RHEUMATOID ARTHRITIS
     Route: 058
     Dates: start: 20100125, end: 20110628
  18. ULTRACET [Concomitant]
     Dosage: ACT 325/TRAMADOL 37.5 BID
     Route: 048
     Dates: start: 20110809
  19. MOBIC [Concomitant]
     Route: 048
     Dates: start: 20110809
  20. FOLIC ACID [Concomitant]
     Indication: PRODUCT USED FOR UNKNOWN INDICATION
     Dosage: 2 TABLETS, EVERY 4 WEEKS
     Dates: start: 20110707
  21. DEXTROMETHORPLAN SR [Concomitant]
     Indication: PRODUCT USED FOR UNKNOWN INDICATION
     Dates: start: 20110707
  22. LEVOFLOXACIN [Concomitant]
     Dosage: QD-AM/AC
     Route: 048
     Dates: start: 20110809

REACTIONS (26)
  - SPUTUM DISCOLOURED [None]
  - DYSURIA [None]
  - HEPATIC FUNCTION ABNORMAL [None]
  - NAUSEA [None]
  - URINARY TRACT INFECTION [None]
  - PYURIA [None]
  - INTERSTITIAL LUNG DISEASE [None]
  - ORGANISING PNEUMONIA [None]
  - GASTRITIS [None]
  - ACINETOBACTER INFECTION [None]
  - CHILLS [None]
  - VOMITING [None]
  - PNEUMONIA [None]
  - PRODUCTIVE COUGH [None]
  - CHEST X-RAY ABNORMAL [None]
  - DECREASED APPETITE [None]
  - PYREXIA [None]
  - WEIGHT DECREASED [None]
  - UPPER RESPIRATORY TRACT INFECTION [None]
  - ABDOMINAL DISTENSION [None]
  - HYPOPHAGIA [None]
  - C-REACTIVE PROTEIN INCREASED [None]
  - TACHYCARDIA [None]
  - BACTERIURIA [None]
  - DYSPNOEA [None]
  - RHEUMATOID ARTHRITIS [None]
